FAERS Safety Report 19936190 (Version 2)
Quarter: 2021Q4

REPORT INFORMATION
  Report Type: Spontaneous
  Country: ES (occurrence: ES)
  Receive Date: 20211008
  Receipt Date: 20211025
  Transmission Date: 20220303
  Serious: Yes (Death, Hospitalization)
  Sender: FDA-Public Use
  Company Number: ES-SA-SAC20211006000524

PATIENT

DRUGS (1)
  1. LIBTAYO [Suspect]
     Active Substance: CEMIPLIMAB-RWLC
     Indication: Squamous cell carcinoma of skin
     Dosage: 350 MG
     Route: 042
     Dates: start: 20210127, end: 20210804

REACTIONS (3)
  - COVID-19 [Fatal]
  - Dyspnoea [Fatal]
  - Pyrexia [Fatal]
